FAERS Safety Report 17845822 (Version 1)
Quarter: 2020Q2

REPORT INFORMATION
  Report Type: Spontaneous
  Country: PT (occurrence: PT)
  Receive Date: 20200601
  Receipt Date: 20200601
  Transmission Date: 20200714
  Serious: Yes (Hospitalization, Other)
  Sender: FDA-Public Use
  Company Number: PT-GLAXOSMITHKLINE-PT2020088227

PATIENT
  Sex: Male

DRUGS (1)
  1. VOLTAREN EMULGELEX [Suspect]
     Active Substance: DICLOFENAC DIETHYLAMINE
     Indication: NONINFECTIVE GINGIVITIS
     Dosage: UNK

REACTIONS (2)
  - Product administered at inappropriate site [Unknown]
  - Poisoning [Unknown]
